FAERS Safety Report 22585965 (Version 6)
Quarter: 2023Q4

REPORT INFORMATION
  Report Type: Report from Study
  Country: US (occurrence: US)
  Receive Date: 20230610
  Receipt Date: 20231222
  Transmission Date: 20240110
  Serious: No
  Sender: FDA-Public Use
  Company Number: US-002147023-NVSC2023US130248

PATIENT
  Age: 42 Year
  Sex: Female

DRUGS (3)
  1. KESIMPTA [Suspect]
     Active Substance: OFATUMUMAB
     Indication: Relapsing multiple sclerosis
     Dosage: 20 MG, QMO
     Route: 058
     Dates: start: 20230523
  2. KESIMPTA [Suspect]
     Active Substance: OFATUMUMAB
     Dosage: UNK
     Route: 065
     Dates: start: 20230820
  3. KESIMPTA [Suspect]
     Active Substance: OFATUMUMAB
     Dosage: UNK
     Route: 065
     Dates: start: 20231208

REACTIONS (10)
  - Pain [Unknown]
  - Gait disturbance [Unknown]
  - Arthralgia [Unknown]
  - Sciatica [Unknown]
  - Fatigue [Unknown]
  - Pelvic organ prolapse [Unknown]
  - COVID-19 [Unknown]
  - Gastroenteritis viral [Unknown]
  - Back injury [Unknown]
  - Back pain [Unknown]

NARRATIVE: CASE EVENT DATE: 20230606
